FAERS Safety Report 11916651 (Version 1)
Quarter: 2016Q1

REPORT INFORMATION
  Report Type: Report from Study
  Country: US (occurrence: US)
  Receive Date: 20160114
  Receipt Date: 20160114
  Transmission Date: 20160526
  Serious: Yes (Death, Other)
  Sender: FDA-Public Use
  Company Number: US-JNJFOC-20151205884

PATIENT
  Age: 83 Year
  Sex: Female

DRUGS (13)
  1. PHOSPHORUS [Concomitant]
     Active Substance: PHOSPHORUS
  2. LASIX [Concomitant]
     Active Substance: FUROSEMIDE
     Route: 042
  3. ELIQUIS [Concomitant]
     Active Substance: APIXABAN
  4. AMIODARONE [Concomitant]
     Active Substance: AMIODARONE
  5. CLARITIN [Concomitant]
     Active Substance: LORATADINE
  6. CEFTRIAXONE. [Concomitant]
     Active Substance: CEFTRIAXONE
  7. CIPRO [Concomitant]
     Active Substance: CIPROFLOXACIN HYDROCHLORIDE
     Indication: RESPIRATORY TRACT INFECTION
     Dates: start: 20151015, end: 20151105
  8. DILTIAZEM [Concomitant]
     Active Substance: DILTIAZEM
  9. IMBRUVICA [Suspect]
     Active Substance: IBRUTINIB
     Indication: MANTLE CELL LYMPHOMA
     Route: 048
     Dates: start: 20151016, end: 20151125
  10. PROTONIX [Concomitant]
     Active Substance: PANTOPRAZOLE SODIUM
  11. ASPIRIN. [Concomitant]
     Active Substance: ASPIRIN
  12. DOXYCYCLINE. [Concomitant]
     Active Substance: DOXYCYCLINE
  13. PEPCID [Concomitant]
     Active Substance: FAMOTIDINE

REACTIONS (7)
  - Renal failure [Not Recovered/Not Resolved]
  - Atrial fibrillation [Unknown]
  - White blood cell count increased [Unknown]
  - Malnutrition [Unknown]
  - Gastroenteritis [Unknown]
  - Respiratory failure [Unknown]
  - Cardiac failure congestive [Fatal]

NARRATIVE: CASE EVENT DATE: 201510
